FAERS Safety Report 25802237 (Version 2)
Quarter: 2025Q4

REPORT INFORMATION
  Report Type: Spontaneous
  Country: US (occurrence: US)
  Receive Date: 20250915
  Receipt Date: 20251001
  Transmission Date: 20260117
  Serious: Yes (Death, Other)
  Sender: LABORATOIRES SERB
  Company Number: US-SERB S.A.S.-2184514

PATIENT
  Age: 48 Year
  Sex: Male

DRUGS (6)
  1. CYANOKIT [Suspect]
     Active Substance: HYDROXOCOBALAMIN
     Indication: Carbon monoxide poisoning
  2. NOREPINEPHRINE [Concomitant]
     Active Substance: NOREPINEPHRINE
  3. ANGIOTENSIN II [Concomitant]
     Active Substance: ANGIOTENSIN II
  4. EPINEPHRINE [Concomitant]
     Active Substance: EPINEPHRINE
  5. INSULIN NOS [Concomitant]
     Active Substance: INSULIN NOS
  6. VASOPRESSIN [Concomitant]
     Active Substance: VASOPRESSIN

REACTIONS (7)
  - Toxic encephalopathy [Fatal]
  - Product use in unapproved indication [Unknown]
  - Septic shock [Unknown]
  - Respiratory failure [Unknown]
  - Pneumonia [Unknown]
  - Renal failure [Unknown]
  - Hepatic failure [Unknown]
